FAERS Safety Report 13227245 (Version 1)
Quarter: 2017Q1

REPORT INFORMATION
  Report Type: Spontaneous
  Country: GB (occurrence: GB)
  Receive Date: 20170213
  Receipt Date: 20170213
  Transmission Date: 20170428
  Serious: Yes (Other)
  Sender: FDA-Public Use
  Company Number: PHHY2017GB021392

PATIENT
  Age: 19 Year
  Sex: Male

DRUGS (5)
  1. FYCOMPA [Suspect]
     Active Substance: PERAMPANEL
     Indication: PRODUCT USED FOR UNKNOWN INDICATION
     Dosage: 0.5 MG, FOR 2 WEEKS
     Route: 048
  2. TEGRETOL [Suspect]
     Active Substance: CARBAMAZEPINE
     Indication: PRODUCT USED FOR UNKNOWN INDICATION
     Dosage: UNK
     Route: 065
  3. EPILIM [Suspect]
     Active Substance: VALPROATE SODIUM
     Indication: PRODUCT USED FOR UNKNOWN INDICATION
     Route: 065
  4. FYCOMPA [Suspect]
     Active Substance: PERAMPANEL
     Dosage: 1 MG, 2 WEEKS AGO
     Route: 048
  5. FYCOMPA [Suspect]
     Active Substance: PERAMPANEL
     Dosage: UNK
     Route: 048
     Dates: start: 20170127

REACTIONS (5)
  - Sleep apnoea syndrome [Unknown]
  - Seizure [Unknown]
  - Blood pressure decreased [Unknown]
  - Condition aggravated [Unknown]
  - Syncope [Unknown]

NARRATIVE: CASE EVENT DATE: 20170128
